FAERS Safety Report 19891355 (Version 1)
Quarter: 2021Q3

REPORT INFORMATION
  Report Type: Spontaneous
  Country: CN (occurrence: CN)
  Receive Date: 20210927
  Receipt Date: 20210927
  Transmission Date: 20211014
  Serious: Yes (Other)
  Sender: FDA-Public Use
  Company Number: CN-BAXTER-2021BAX030257

PATIENT
  Age: 44 Year
  Sex: Female
  Weight: 51.5 kg

DRUGS (8)
  1. 0.9% SODIUM CHLORIDE INJECTION [Suspect]
     Active Substance: SODIUM CHLORIDE
     Dosage: INTRAVENOUS DRIP OF NS 100ML + EPIRUBICIN HYDROCHLORIDE FOR INJECTION 140 MG
     Route: 041
     Dates: start: 20210808, end: 20210808
  2. ENDOXAN [Suspect]
     Active Substance: CYCLOPHOSPHAMIDE
     Dosage: DOSE REINTRODUCED, INTRAVENOUS DRIP OF NS + CYCLOPHOSPHAMIDE FOR INJECTION
     Route: 041
     Dates: start: 20210829
  3. 0.9% SODIUM CHLORIDE INJECTION [Suspect]
     Active Substance: SODIUM CHLORIDE
     Indication: MEDICATION DILUTION
     Dosage: INTRAVENOUS DRIP OF NS 100ML + CYCLOPHOSPHAMIDE FOR INJECTION 1G
     Route: 041
     Dates: start: 20210808, end: 20210808
  4. 0.9% SODIUM CHLORIDE INJECTION [Suspect]
     Active Substance: SODIUM CHLORIDE
     Dosage: DOSE RE?INTRODUCED, INTRAVENOUS DRIP OF NS + EPIRUBICIN HYDROCHLORIDE FOR INJECTION
     Route: 041
     Dates: start: 20210829
  5. ENDOXAN [Suspect]
     Active Substance: CYCLOPHOSPHAMIDE
     Indication: BREAST CANCER FEMALE
     Dosage: INTRAVENOUS DRIP OF NS 100ML + CYCLOPHOSPHAMIDE FOR INJECTION 1G
     Route: 041
     Dates: start: 20210808, end: 20210808
  6. 0.9% SODIUM CHLORIDE INJECTION [Suspect]
     Active Substance: SODIUM CHLORIDE
     Dosage: DOSE RE?INTRODUCED, INTRAVENOUS DRIP OF NS + CYCLOPHOSPHAMIDE FOR INJECTION
     Route: 041
     Dates: start: 20210829
  7. EPIRUBICIN HYDROCHLORIDE. [Suspect]
     Active Substance: EPIRUBICIN HYDROCHLORIDE
     Indication: BREAST CANCER FEMALE
     Dosage: NS 100ML + EPIRUBICIN HYDROCHLORIDE FOR INJECTION 140 MG
     Route: 041
     Dates: start: 20210808, end: 20210808
  8. EPIRUBICIN HYDROCHLORIDE. [Suspect]
     Active Substance: EPIRUBICIN HYDROCHLORIDE
     Dosage: DOSE REINTRODUCED, NS + EPIRUBICIN HYDROCHLORIDE FOR INJECTION
     Route: 041
     Dates: start: 20210829

REACTIONS (1)
  - Myelosuppression [Unknown]

NARRATIVE: CASE EVENT DATE: 20210828
